FAERS Safety Report 25869597 (Version 1)
Quarter: 2025Q4

REPORT INFORMATION
  Report Type: Spontaneous
  Country: EU (occurrence: EU)
  Receive Date: 20251001
  Receipt Date: 20251001
  Transmission Date: 20260118
  Serious: Yes (Hospitalization)
  Sender: MYLAN
  Company Number: EU-MYLANLABS-2025M1083409

PATIENT
  Age: 19 Year
  Sex: Female

DRUGS (4)
  1. NITROGLYCERIN [Suspect]
     Active Substance: NITROGLYCERIN
     Indication: Venous pressure increased
     Dosage: 5 MILLIGRAM, QD, DERMAL
  2. NITROGLYCERIN [Suspect]
     Active Substance: NITROGLYCERIN
     Indication: Intracranial pressure increased
  3. NITROGLYCERIN [Suspect]
     Active Substance: NITROGLYCERIN
     Indication: CSF pressure decreased
  4. NITROGLYCERIN [Suspect]
     Active Substance: NITROGLYCERIN
     Indication: Therapeutic procedure

REACTIONS (3)
  - Headache [Unknown]
  - Condition aggravated [Unknown]
  - Off label use [Unknown]
